FAERS Safety Report 10210384 (Version 1)
Quarter: 2014Q2

REPORT INFORMATION
  Report Type: Spontaneous
  Country: FR (occurrence: FR)
  Receive Date: 20140602
  Receipt Date: 20140602
  Transmission Date: 20141212
  Serious: Yes (Hospitalization)
  Sender: FDA-Public Use
  Company Number: PHHY2014FR063580

PATIENT
  Age: 90 Year
  Sex: Female

DRUGS (14)
  1. TEGRETOL [Suspect]
     Dosage: 200 MG, BID
     Route: 048
     Dates: start: 20131208, end: 201403
  2. CLARITHROMYCIN [Suspect]
     Indication: LUNG DISORDER
     Dosage: UNK UKN, UNK
     Route: 048
  3. AMOXICILLIN [Suspect]
     Indication: LUNG DISORDER
     Dosage: UNK UKN, UNK
     Route: 048
     Dates: start: 20140224, end: 20140228
  4. AUGMENTIN [Suspect]
     Indication: LUNG DISORDER
     Dosage: 3 G, QD
     Route: 048
     Dates: start: 20140212, end: 20140218
  5. COUMADINE [Concomitant]
     Dosage: UNK UKN, UNK
     Route: 048
     Dates: start: 201402, end: 201403
  6. PARACETAMOL [Concomitant]
     Dosage: 1 G, QID
  7. TEMERIT [Concomitant]
     Dosage: 5 MG, QD
     Route: 048
  8. SERESTA [Concomitant]
     Dosage: 10 MG, QID
     Route: 048
  9. STILNOX [Concomitant]
     Dosage: 10 MG, QID
     Route: 048
  10. LASILIX [Concomitant]
     Dosage: 40 MG, QD
     Route: 048
  11. LOXAPAC [Concomitant]
     Indication: AGITATION
     Dosage: 10 DRP, TID
     Route: 048
  12. VITABACT [Concomitant]
     Dosage: 2 DRP, BID
     Route: 047
  13. UVEDOSE [Concomitant]
     Dosage: 1 DF, UNK
     Route: 048
  14. TAZOCILLINE [Concomitant]
     Dosage: UNK UKN, UNK
     Route: 048
     Dates: start: 20140318

REACTIONS (2)
  - Dermatitis exfoliative [Recovered/Resolved]
  - Drug reaction with eosinophilia and systemic symptoms [Recovered/Resolved]
